FAERS Safety Report 16921512 (Version 1)
Quarter: 2019Q4

REPORT INFORMATION
  Report Type: Spontaneous
  Country: US (occurrence: US)
  Receive Date: 20191015
  Receipt Date: 20191015
  Transmission Date: 20200122
  Serious: Yes (Life-Threatening)
  Sender: FDA-Public Use
  Company Number: NVSC2019US002118

PATIENT
  Age: 54 Year
  Sex: Male

DRUGS (1)
  1. QUETIAPINE. [Suspect]
     Active Substance: QUETIAPINE
     Indication: PSYCHOMOTOR HYPERACTIVITY
     Route: 065

REACTIONS (4)
  - Parkinsonism hyperpyrexia syndrome [Recovering/Resolving]
  - Pyrexia [Recovering/Resolving]
  - Muscle rigidity [Unknown]
  - Tachycardia [Unknown]
